FAERS Safety Report 19912878 (Version 1)
Quarter: 2021Q4

REPORT INFORMATION
  Report Type: Spontaneous
  Country: US (occurrence: US)
  Receive Date: 20211004
  Receipt Date: 20211004
  Transmission Date: 20220303
  Serious: Yes (Life-Threatening)
  Sender: FDA-Public Use
  Company Number: None

PATIENT
  Age: 38 Year
  Sex: Male
  Weight: 81.6 kg

DRUGS (1)
  1. REGEN-COV [Suspect]
     Active Substance: CASIRIVIMAB\IMDEVIMAB
     Indication: Exposure to SARS-CoV-2
     Dates: start: 20211002, end: 20211002

REACTIONS (6)
  - Infusion related reaction [None]
  - Dyspnoea [None]
  - Feeling hot [None]
  - Erythema [None]
  - Chest discomfort [None]
  - Erythema [None]

NARRATIVE: CASE EVENT DATE: 20211002
